FAERS Safety Report 9039060 (Version 1)
Quarter: 2013Q1

REPORT INFORMATION
  Report Type: Spontaneous
  Country: US (occurrence: None)
  Receive Date: 20130122
  Receipt Date: 20130122
  Transmission Date: 20140127
  Serious: Yes (Other)
  Sender: FDA-Public Use
  Company Number: None

PATIENT
  Sex: Female
  Weight: 71.67 kg

DRUGS (2)
  1. IMPLANON [Suspect]
     Indication: CONTRACEPTION
     Dates: start: 20090711, end: 20101116
  2. IMPLANON [Suspect]
     Indication: PREMENSTRUAL SYNDROME
     Dates: start: 20090711, end: 20101116

REACTIONS (2)
  - Infertility [None]
  - Amenorrhoea [None]
